FAERS Safety Report 8523202-1 (Version None)
Quarter: 2012Q3

REPORT INFORMATION
  Report Type: 
  Country: None (occurrence: None)
  Receive Date: 20120713
  Receipt Date: 20120713
  Transmission Date: 20120928
  Serious: Yes (Hospitalization)
  Sender: FDA-Public Use
  Company Number: None

PATIENT
  Age: 84 Year
  Sex: Male
  Weight: 73 kg

DRUGS (15)
  1. AZATHIOPRINE [Suspect]
     Indication: PEMPHIGOID
     Dosage: 50 MG TID PO 6-8 MONTHS
     Route: 048
  2. ALENDRONATE SODIUM [Concomitant]
  3. PREDNISONE [Concomitant]
  4. SIMVASTATIN [Concomitant]
  5. ALBUTEROL/IPRATROPIUM INHALER [Concomitant]
  6. CALCIUM + VITAMIN D [Concomitant]
  7. FOLIC ACID [Concomitant]
  8. GUAIFENESIN LA [Concomitant]
  9. LEVOTHYROXINE SODIUM [Concomitant]
  10. LISINOPRIL [Concomitant]
  11. CYANOCOBOLAMIN [Concomitant]
  12. FLUTICASONE/SALMETEROL INHALER [Concomitant]
  13. CLOPIDOGREL [Concomitant]
  14. ASPIRIN [Concomitant]
  15. CHOLECALCIFEROL [Concomitant]

REACTIONS (1)
  - PANCYTOPENIA [None]
